FAERS Safety Report 9395621 (Version 3)
Quarter: 2013Q3

REPORT INFORMATION
  Report Type: Spontaneous
  Country: JP (occurrence: JP)
  Receive Date: 20130711
  Receipt Date: 20130724
  Transmission Date: 20140515
  Serious: Yes (Hospitalization)
  Sender: FDA-Public Use
  Company Number: JP-009507513-1307JPN003132

PATIENT
  Age: 68 Year
  Sex: Male
  Weight: 52 kg

DRUGS (10)
  1. PEGINTRON [Suspect]
     Indication: CHRONIC HEPATITIS C
     Dosage: 1.5 MICROGRAM PER KILOGRAM, QW
     Route: 058
     Dates: start: 20130403, end: 20130515
  2. PEGINTRON [Suspect]
     Dosage: 1.5 MICROGRAM PER KILOGRAM, QW
     Route: 058
     Dates: start: 20130612
  3. REBETOL [Suspect]
     Indication: CHRONIC HEPATITIS C
     Dosage: 400 MG, QD
     Route: 048
     Dates: start: 20130403, end: 20130508
  4. REBETOL [Suspect]
     Dosage: 200 MG, QD
     Route: 048
     Dates: start: 20130509, end: 20130522
  5. REBETOL [Suspect]
     Dosage: 400 MG, QD
     Route: 048
     Dates: start: 20130612
  6. TELAVIC [Suspect]
     Indication: CHRONIC HEPATITIS C
     Dosage: 750 MG, BID
     Route: 048
     Dates: start: 20130403, end: 20130522
  7. LOXONIN [Concomitant]
     Indication: PROPHYLAXIS
     Dosage: 60 MG/DAY, AS NEEDED; FORMULATION: POR
     Route: 048
     Dates: start: 20130403
  8. LOXONIN [Concomitant]
     Indication: ADVERSE REACTION
  9. LOXONIN [Concomitant]
     Indication: INFECTION
  10. MUCOSTA [Concomitant]
     Indication: PROPHYLAXIS
     Dosage: 100 MG/DAY,AS NEEDED; FORMULATION: POR
     Route: 048
     Dates: start: 20130403

REACTIONS (3)
  - Renal disorder [Recovered/Resolved]
  - Anaemia [Recovering/Resolving]
  - Pyrexia [Recovering/Resolving]
